FAERS Safety Report 9746199 (Version 1)
Quarter: 2013Q4

REPORT INFORMATION
  Report Type: Spontaneous
  Country: US (occurrence: None)
  Receive Date: 20131209
  Receipt Date: 20131209
  Transmission Date: 20140711
  Serious: No
  Sender: FDA-Public Use
  Company Number: None

PATIENT
  Age: 50 Year
  Sex: Male
  Weight: 66.68 kg

DRUGS (2)
  1. NEXIUM [Suspect]
     Indication: DYSPEPSIA
     Dosage: 2 PILLS, 16 HOURS APART ?ONCE DAILY ?TAKEN BY MOUTH
     Route: 048
     Dates: start: 20131206, end: 20131207
  2. NEXIUM [Suspect]
     Indication: DYSPEPSIA
     Dosage: 2 PILLS, 16 HOURS APART ?ONCE DAILY ?TAKEN BY MOUTH
     Route: 048
     Dates: start: 20131206, end: 20131207

REACTIONS (3)
  - Hunger [None]
  - Nausea [None]
  - Paraesthesia [None]
